FAERS Safety Report 4712602-3 (Version None)
Quarter: 2005Q3

REPORT INFORMATION
  Report Type: 
  Country: None (occurrence: None)
  Receive Date: 20050712
  Receipt Date: 20031121
  Transmission Date: 20060218
  Serious: Yes (Hospitalization, Disabling)
  Sender: FDA-Public Use
  Company Number: US-MERCK-0311USA02530

PATIENT
  Age: 43 Year
  Sex: Female
  Weight: 60 kg

DRUGS (8)
  1. VIOXX [Suspect]
     Indication: OSTEOARTHRITIS
     Route: 048
     Dates: end: 19990501
  2. WELLBUTRIN [Concomitant]
     Indication: DEPRESSION
     Route: 065
     Dates: start: 19940101, end: 19950101
  3. WELLBUTRIN [Concomitant]
     Route: 065
     Dates: start: 19990101, end: 19990101
  4. NITROGLYCERIN [Concomitant]
     Route: 065
     Dates: start: 19990501
  5. ULTRAM [Concomitant]
     Indication: ANALGESIC EFFECT
     Route: 065
     Dates: start: 19990101, end: 20030101
  6. ULTRACET [Concomitant]
     Indication: ANALGESIC EFFECT
     Route: 065
     Dates: start: 19990101, end: 20030101
  7. BUTALBITAL [Concomitant]
     Indication: MIGRAINE
     Route: 065
     Dates: start: 19990101, end: 20040101
  8. ASPIRIN [Concomitant]
     Route: 065
     Dates: start: 19990101

REACTIONS (18)
  - ANXIETY [None]
  - ARTHRALGIA [None]
  - ASTHENIA [None]
  - CHEST PAIN [None]
  - CHOLECYSTITIS CHRONIC [None]
  - CHOLELITHIASIS [None]
  - CYSTITIS [None]
  - EMOTIONAL DISTRESS [None]
  - HYPOTHYROIDISM [None]
  - INGROWING NAIL [None]
  - MIGRAINE [None]
  - MIGRAINE WITHOUT AURA [None]
  - MYOCARDIAL INFARCTION [None]
  - NEUROPATHY PERIPHERAL [None]
  - OBESITY [None]
  - PAIN [None]
  - RHINITIS [None]
  - UPPER RESPIRATORY TRACT INFECTION [None]
